FAERS Safety Report 5493312-4 (Version None)
Quarter: 2007Q4

REPORT INFORMATION
  Report Type: 
  Country: None (occurrence: None)
  Receive Date: 20071023
  Receipt Date: 20061121
  Transmission Date: 20080405
  Serious: No
  Sender: FDA-Public Use
  Company Number: US-BRISTOL-MYERS SQUIBB COMPANY-13586532

PATIENT
  Sex: Female
  Weight: 44 kg

DRUGS (7)
  1. KENALOG-40 [Suspect]
     Indication: RHEUMATOID ARTHRITIS
     Dates: start: 20060801
  2. ZYPREXA [Concomitant]
  3. LUNESTA [Concomitant]
  4. PREDNISONE [Concomitant]
  5. METHOTREXATE [Concomitant]
  6. HUMIRA [Concomitant]
  7. SULFA [Concomitant]

REACTIONS (1)
  - SKIN ODOUR ABNORMAL [None]
